FAERS Safety Report 10667218 (Version 1)
Quarter: 2014Q4

REPORT INFORMATION
  Report Type: Spontaneous
  Country: US (occurrence: US)
  Receive Date: 20141222
  Receipt Date: 20141222
  Transmission Date: 20150529
  Serious: Yes (Hospitalization, Other)
  Sender: FDA-Public Use
  Company Number: US-SUN PHARMACEUTICAL INDUSTRIES LTD-2014SUN02908

PATIENT
  Age: 80 Year

DRUGS (3)
  1. LINEZOLID. [Interacting]
     Active Substance: LINEZOLID
     Indication: SOFT TISSUE INFECTION
     Dosage: UNK
     Route: 065
  2. PHENYTOIN SODIUM. [Suspect]
     Active Substance: PHENYTOIN SODIUM
     Indication: PRODUCT USED FOR UNKNOWN INDICATION
     Dosage: UNK
     Route: 065
  3. CITALOPRAM [Interacting]
     Active Substance: CITALOPRAM HYDROBROMIDE
     Indication: PRODUCT USED FOR UNKNOWN INDICATION
     Dosage: UNK
     Route: 065

REACTIONS (11)
  - Seizure [Unknown]
  - Drug interaction [Unknown]
  - Hyperhidrosis [Unknown]
  - VIIth nerve paralysis [Unknown]
  - Dyskinesia [Unknown]
  - Muscle twitching [Unknown]
  - Tremor [Unknown]
  - Nystagmus [Unknown]
  - Serotonin syndrome [Unknown]
  - Myoclonus [Unknown]
  - Blepharospasm [Unknown]
